FAERS Safety Report 6325309-6 (Version None)
Quarter: 2009Q3

REPORT INFORMATION
  Report Type: 
  Country: None (occurrence: None)
  Receive Date: 20090824
  Receipt Date: 20090713
  Transmission Date: 20100115
  Serious: No
  Sender: FDA-Public Use
  Company Number: US-ABBOTT-09P-163-0585411-00

PATIENT
  Sex: Female

DRUGS (15)
  1. NIASPAN [Suspect]
     Indication: BLOOD CHOLESTEROL INCREASED
     Dates: start: 20080101, end: 20081001
  2. NIASPAN [Suspect]
     Dates: start: 20090201
  3. FENOFIBRATE [Concomitant]
     Indication: BLOOD CHOLESTEROL INCREASED
  4. FISH OIL [Concomitant]
     Indication: BLOOD CHOLESTEROL INCREASED
  5. JANUMET [Concomitant]
     Indication: DIABETES MELLITUS
  6. BENACAR [Concomitant]
     Indication: HYPERTENSION
  7. ASPIRIN [Concomitant]
     Indication: CORONARY ARTERIAL STENT INSERTION
  8. CARVEDILOL [Concomitant]
     Indication: HYPERTENSION
  9. RAMIPRIL [Concomitant]
     Indication: BLOOD CHOLESTEROL INCREASED
  10. LEXAPRO [Concomitant]
     Indication: ANXIETY
  11. PLAVIX [Concomitant]
     Indication: CORONARY ARTERIAL STENT INSERTION
  12. LANTUS [Concomitant]
     Indication: DIABETES MELLITUS
     Dosage: IN PM
  13. LANTUS [Concomitant]
  14. NITROGLYCERIN [Concomitant]
     Indication: MYOCARDIAL INFARCTION
     Route: 060
  15. NITROGLYCERIN [Concomitant]
     Indication: CHEST PAIN

REACTIONS (3)
  - ANXIETY [None]
  - FLUSHING [None]
  - LIP SWELLING [None]
